FAERS Safety Report 5103402-3 (Version None)
Quarter: 2006Q3

REPORT INFORMATION
  Report Type: 
  Country: None (occurrence: None)
  Receive Date: 20060913
  Receipt Date: 20060830
  Transmission Date: 20061208
  Serious: Yes (Hospitalization)
  Sender: FDA-Public Use
  Company Number: HQWYE183631AUG06

PATIENT
  Sex: Female
  Weight: 43 kg

DRUGS (12)
  1. ENBREL [Suspect]
     Indication: RHEUMATOID ARTHRITIS
     Route: 058
     Dates: start: 20060116
  2. MOBIC [Concomitant]
     Indication: RHEUMATOID ARTHRITIS
     Dosage: UNKNOWN
     Route: 048
  3. NORVASC [Concomitant]
     Dosage: UNKNOWN
     Route: 048
  4. PARIET [Concomitant]
     Dosage: UNKNOWN
     Route: 048
  5. HYALEIN [Concomitant]
  6. ASPIRIN [Concomitant]
     Dosage: UNKNOWN
     Route: 048
  7. LASIX [Concomitant]
     Dosage: UNKNOWN
     Route: 048
  8. ALDACTONE-A [Concomitant]
     Dosage: UNKNOWN
     Route: 048
  9. BLOPRESS [Concomitant]
     Dosage: UNKNOWN
     Route: 048
  10. PLETAL [Concomitant]
     Dosage: UNKNOWN
     Route: 048
  11. METHOTREXATE [Concomitant]
     Dosage: UNKNOWN
     Route: 048
  12. MAGNESIUM OXIDE [Concomitant]
     Dosage: UNKNOWN
     Route: 048

REACTIONS (6)
  - CONDITION AGGRAVATED [None]
  - ECZEMA [None]
  - HAEMORRHAGE SUBCUTANEOUS [None]
  - OEDEMA [None]
  - RETINOPATHY HYPERTENSIVE [None]
  - THROMBOPHLEBITIS [None]
